FAERS Safety Report 18067825 (Version 1)
Quarter: 2020Q3

REPORT INFORMATION
  Report Type: Report from Study
  Country: JP (occurrence: JP)
  Receive Date: 20200724
  Receipt Date: 20200724
  Transmission Date: 20201103
  Serious: Yes (Other)
  Sender: FDA-Public Use
  Company Number: JP-PFIZER INC-2019-06679

PATIENT
  Age: 55 Year
  Sex: Female

DRUGS (2)
  1. BINIMETINIB [Suspect]
     Active Substance: BINIMETINIB
     Indication: MALIGNANT MELANOMA
     Dosage: 45 MG, 2X/DAY (Q12H)
     Route: 048
     Dates: start: 20191025, end: 20191031
  2. ENCORAFENIB [Suspect]
     Active Substance: ENCORAFENIB
     Indication: MALIGNANT MELANOMA
     Dosage: 450 MG
     Route: 048
     Dates: start: 20191025, end: 20191031

REACTIONS (1)
  - Retinal disorder [Recovered/Resolved]

NARRATIVE: CASE EVENT DATE: 20191025
